FAERS Safety Report 11913507 (Version 13)
Quarter: 2018Q3

REPORT INFORMATION
  Report Type: Report from Study
  Country: BR (occurrence: BR)
  Receive Date: 20160113
  Receipt Date: 20180822
  Transmission Date: 20181010
  Serious: Yes (Other)
  Sender: FDA-Public Use
  Company Number: PHHY2015BR167887

PATIENT
  Age: 61 Year
  Sex: Female
  Weight: 63 kg

DRUGS (11)
  1. GARDENAL//PHENOBARBITAL [Concomitant]
     Active Substance: PHENOBARBITAL
     Indication: SEIZURE
     Dosage: 2 DF, QD
     Route: 048
  2. EXJADE [Suspect]
     Active Substance: DEFERASIROX
     Indication: SICKLE CELL ANAEMIA
     Dosage: 25 MG/KG, QD (3 DF OF 500 MG ONCE DAILY)
     Route: 048
     Dates: start: 201509
  3. EXJADE [Suspect]
     Active Substance: DEFERASIROX
     Dosage: 3 DF, UNK
     Route: 048
     Dates: start: 201602
  4. GARDENAL//PHENOBARBITAL [Concomitant]
     Active Substance: PHENOBARBITAL
     Indication: EPILEPSY
     Dosage: 1 DF, QD
     Route: 048
  5. HIDANTAL [Concomitant]
     Active Substance: PHENYTOIN SODIUM
     Indication: EPILEPSY
     Dosage: 2 DF, QD
     Route: 048
  6. PURAN [Concomitant]
     Active Substance: LEVOTHYROXINE SODIUM
     Indication: THYROID DISORDER
     Dosage: 1 DF, QD
     Route: 048
     Dates: start: 2015
  7. FILGRASTIM [Concomitant]
     Active Substance: FILGRASTIM
     Indication: SICKLE CELL ANAEMIA
     Dosage: 1 DF (1 INJECTION A DAY/ THREE TIMES A WEEK
     Route: 058
     Dates: start: 2014, end: 201607
  8. HIDANTAL [Concomitant]
     Active Substance: PHENYTOIN SODIUM
     Indication: SEIZURE
  9. EXJADE [Suspect]
     Active Substance: DEFERASIROX
     Dosage: 500 MG, QD
     Route: 048
     Dates: start: 2015
  10. EXJADE [Suspect]
     Active Substance: DEFERASIROX
     Dosage: 10 MG/KG, QD (1 DF OF 500 MG DAILY)
     Route: 048
     Dates: start: 201604, end: 201607
  11. PURAN [Concomitant]
     Active Substance: LEVOTHYROXINE SODIUM
     Indication: HYPOTHYROIDISM

REACTIONS (37)
  - Peripheral swelling [Recovered/Resolved]
  - Malaise [Recovered/Resolved]
  - Erythema [Recovered/Resolved]
  - Pneumonia [Recovered/Resolved]
  - Peripheral swelling [Recovered/Resolved]
  - Urinary retention [Recovered/Resolved]
  - Feeding disorder [Unknown]
  - Epilepsy [Unknown]
  - Retching [Recovered/Resolved]
  - Nausea [Recovered/Resolved]
  - Dyspnoea [Recovered/Resolved]
  - Back pain [Recovered/Resolved]
  - Anuria [Recovered/Resolved]
  - Malaise [Recovered/Resolved]
  - Pain [Recovered/Resolved]
  - Asthenia [Recovered/Resolved]
  - Blood urea increased [Unknown]
  - Fall [Unknown]
  - Retching [Recovered/Resolved]
  - Feeding disorder [Recovered/Resolved]
  - Mouth injury [Recovered/Resolved]
  - Weight decreased [Unknown]
  - Vomiting [Recovered/Resolved]
  - Oral pain [Recovered/Resolved]
  - Abdominal pain [Recovered/Resolved]
  - Gait disturbance [Recovering/Resolving]
  - Mouth injury [Unknown]
  - Eye colour change [Unknown]
  - Pyrexia [Recovered/Resolved]
  - Sickle cell anaemia with crisis [Unknown]
  - Decreased appetite [Recovered/Resolved]
  - Head injury [Unknown]
  - Urinary tract infection [Recovered/Resolved]
  - Oral pain [Recovered/Resolved]
  - Diet refusal [Recovered/Resolved]
  - Retching [Recovered/Resolved]
  - Serum ferritin increased [Unknown]

NARRATIVE: CASE EVENT DATE: 201510
